FAERS Safety Report 9445858 (Version 3)
Quarter: 2013Q4

REPORT INFORMATION
  Report Type: Spontaneous
  Country: GB (occurrence: GB)
  Receive Date: 20130807
  Receipt Date: 20131202
  Transmission Date: 20140711
  Serious: Yes (Other)
  Sender: FDA-Public Use
  Company Number: GB-BRISTOL-MYERS SQUIBB COMPANY-19118991

PATIENT
  Age: 35 Year
  Sex: Female

DRUGS (2)
  1. SPRYCEL [Suspect]
     Indication: CHRONIC MYELOID LEUKAEMIA
     Route: 048
     Dates: start: 200807, end: 20130625
  2. ADCAL-D3 [Concomitant]

REACTIONS (2)
  - Bundle branch block left [Unknown]
  - Left ventricular dysfunction [Unknown]
